FAERS Safety Report 5910034-3 (Version None)
Quarter: 2008Q4

REPORT INFORMATION
  Report Type: 
  Country: None (occurrence: None)
  Receive Date: 20081007
  Receipt Date: 20070725
  Transmission Date: 20090506
  Serious: No
  Sender: FDA-Public Use
  Company Number: US-ASTRAZENECA-2007UW17977

PATIENT
  Age: 76 Year
  Sex: Female
  Weight: 65.8 kg

DRUGS (4)
  1. ARIMIDEX [Suspect]
     Indication: BREAST CANCER FEMALE
     Route: 048
     Dates: end: 20070601
  2. ARIMIDEX [Suspect]
     Route: 048
     Dates: start: 20070721
  3. SYNTHROID [Concomitant]
  4. LIPITOR [Concomitant]

REACTIONS (2)
  - ARTHRALGIA [None]
  - GROIN PAIN [None]
